FAERS Safety Report 5314928-1 (Version None)
Quarter: 2007Q2

REPORT INFORMATION
  Report Type: 
  Country: None (occurrence: None)
  Receive Date: 20070502
  Receipt Date: 20070426
  Transmission Date: 20071010
  Serious: Yes (Hospitalization)
  Sender: FDA-Public Use
  Company Number: US-JNJFOC-20070400091

PATIENT
  Sex: Male
  Weight: 42.2 kg

DRUGS (26)
  1. TMC125 [Suspect]
     Indication: HIV INFECTION
     Route: 048
  2. PREZISTA [Suspect]
     Indication: HIV INFECTION
     Route: 048
  3. FENTANYL [Concomitant]
  4. RITONAVIR [Concomitant]
     Indication: HIV INFECTION
     Route: 048
  5. FUZEON [Concomitant]
     Indication: HIV INFECTION
     Route: 058
  6. TRUVADA [Suspect]
     Indication: HIV INFECTION
     Route: 048
  7. ZIAGEN [Concomitant]
     Indication: HIV INFECTION
     Route: 048
  8. MK0518 [Concomitant]
     Indication: HIV INFECTION
     Route: 048
  9. AZITHROMYCIN [Concomitant]
  10. ETHAMBUTOL HYDROCHLORIDE [Concomitant]
     Route: 048
  11. RIFABUTIN [Concomitant]
     Route: 048
  12. KDN [Concomitant]
     Route: 048
  13. DILAUDID [Concomitant]
     Indication: PAIN
     Route: 048
  14. NEURONTIN [Concomitant]
     Route: 048
  15. WELLBUTRIN [Concomitant]
     Route: 048
  16. EFFEXOR [Concomitant]
     Route: 048
  17. AVANDIA [Concomitant]
     Route: 048
  18. DAPSONE [Concomitant]
     Route: 048
  19. ACYCLOVIR [Concomitant]
     Route: 048
  20. FLUCONAZOLE [Concomitant]
     Route: 048
  21. TESTOSTERONE [Concomitant]
     Route: 030
  22. ZYRTEC [Concomitant]
     Route: 048
  23. NASONEX [Concomitant]
     Route: 045
  24. VALIUM [Concomitant]
     Indication: ANXIETY
     Route: 048
  25. COMPAZINE [Concomitant]
     Indication: VOMITING
  26. COMPAZINE [Concomitant]
     Indication: NAUSEA

REACTIONS (2)
  - DEEP VEIN THROMBOSIS [None]
  - HODGKIN'S DISEASE [None]
